FAERS Safety Report 5316058-1 (Version None)
Quarter: 2007Q2

REPORT INFORMATION
  Report Type: 
  Country: None (occurrence: None)
  Receive Date: 20070503
  Receipt Date: 20070424
  Transmission Date: 20071010
  Serious: Yes (Hospitalization)
  Sender: FDA-Public Use
  Company Number: US-ELI_LILLY_AND_COMPANY-US200704005749

PATIENT
  Age: 76 Year
  Sex: Female

DRUGS (4)
  1. HUMALOG [Suspect]
     Indication: DIABETES MELLITUS
     Dosage: UNK, UNK
     Dates: start: 20060101
  2. MACROBID [Concomitant]
     Dates: start: 20070421
  3. HUMULIN N [Suspect]
     Indication: DIABETES MELLITUS
  4. LANTUS [Concomitant]
     Indication: DIABETES MELLITUS
     Dosage: 80 U, EACH MORNING

REACTIONS (7)
  - ANAEMIA [None]
  - DIARRHOEA [None]
  - DRUG HYPERSENSITIVITY [None]
  - GOUT [None]
  - LIP SWELLING [None]
  - PAIN [None]
  - URINARY TRACT INFECTION [None]
